FAERS Safety Report 5032930-4 (Version None)
Quarter: 2006Q2

REPORT INFORMATION
  Report Type: 
  Country: None (occurrence: None)
  Receive Date: 20060622
  Receipt Date: 20060509
  Transmission Date: 20061013
  Serious: Yes (Hospitalization)
  Sender: FDA-Public Use
  Company Number: AU-SANOFI-SYNTHELABO-A01200603478

PATIENT
  Sex: Female
  Weight: 65 kg

DRUGS (7)
  1. PANAMAX [Concomitant]
     Indication: DRUG USE FOR UNKNOWN INDICATION
     Route: 048
  2. PANAMAX [Concomitant]
     Route: 048
  3. NORVASC [Concomitant]
     Indication: HYPERTENSION
     Route: 048
  4. LOSEC [Concomitant]
     Indication: GASTROOESOPHAGEAL REFLUX DISEASE
     Route: 048
  5. CALTRATE [Concomitant]
     Indication: OSTEOPENIA
     Dosage: UNK
     Route: 048
  6. PLAVIX [Suspect]
     Indication: PROPHYLAXIS
     Route: 048
     Dates: start: 20040101, end: 20060428
  7. PLAVIX [Suspect]
     Indication: TRANSIENT ISCHAEMIC ATTACK
     Route: 048
     Dates: start: 20040101, end: 20060428

REACTIONS (2)
  - CONTUSION [None]
  - PHARYNGEAL OEDEMA [None]
